FAERS Safety Report 19735817 (Version 1)
Quarter: 2021Q3

REPORT INFORMATION
  Report Type: Spontaneous
  Country: GB (occurrence: GB)
  Receive Date: 20210823
  Receipt Date: 20210823
  Transmission Date: 20211014
  Serious: Yes (Hospitalization)
  Sender: FDA-Public Use
  Company Number: GB-MYLANLABS-2021M1040159

PATIENT
  Age: 24 Year
  Sex: Female

DRUGS (7)
  1. FLUOXETINE [Suspect]
     Active Substance: FLUOXETINE HYDROCHLORIDE
     Indication: PRODUCT USED FOR UNKNOWN INDICATION
     Dosage: 1 DOSAGE FORM, QD (ONE TO BE TAKEN EACH DAY)
  2. VENTOLIN [Concomitant]
     Active Substance: ALBUTEROL SULFATE
     Dosage: TWO PUFFS AS REQUIRED
  3. LIDOCAINE. [Concomitant]
     Active Substance: LIDOCAINE
     Dosage: UNK
  4. PROPRANOLOL [Concomitant]
     Active Substance: PROPRANOLOL HYDROCHLORIDE
     Dosage: 1 UP TO 4 TIMES DAILY 28 TABLET
     Dates: start: 20210119
  5. TRAMADOL. [Concomitant]
     Active Substance: TRAMADOL
     Dosage: 1 DOSAGE FORM, Q6H (ONE TO BE TAKEN EVERY SIX HOURS 30 CAPSULE ? TAKES 2 THREE TIMES A DAY )
     Dates: start: 20210119
  6. GABAPENTIN. [Concomitant]
     Active Substance: GABAPENTIN
     Dosage: 2 DOSAGE FORM, TID (TAKE TWO CAPSULES THREE TIMES DAILY)
  7. RALVO [Concomitant]
     Active Substance: LIDOCAINE HYDROCHLORIDE
     Dosage: APPLY ONCE DAILY FOR UP TO 12 HOURS FOLLOWED BY A 12?HOUR PLASTER?FREE PERIOD AS DIRECTED 15 PLASTER
     Dates: start: 20210113

REACTIONS (2)
  - Heavy menstrual bleeding [Unknown]
  - Anaemia [Unknown]
